FAERS Safety Report 20745392 (Version 4)
Quarter: 2022Q4

REPORT INFORMATION
  Report Type: Spontaneous
  Country: DE (occurrence: DE)
  Receive Date: 20220425
  Receipt Date: 20221229
  Transmission Date: 20230112
  Serious: Yes (Hospitalization, Other)
  Sender: FDA-Public Use
  Company Number: None

PATIENT
  Age: 1 Day
  Sex: Male
  Weight: 4 kg

DRUGS (1)
  1. VENLAFAXINE [Suspect]
     Active Substance: VENLAFAXINE HYDROCHLORIDE
     Indication: Depression
     Dosage: 150 [MG/D ]
     Route: 064
     Dates: start: 20201113, end: 20210814

REACTIONS (7)
  - Pulmonary artery stenosis [Recovered/Resolved]
  - Mitral valve incompetence [Unknown]
  - Respiratory disorder neonatal [Recovered/Resolved]
  - Cyanosis neonatal [Recovered/Resolved]
  - Laryngomalacia [Unknown]
  - Atrial septal defect [Recovered/Resolved]
  - Maternal drugs affecting foetus [Unknown]

NARRATIVE: CASE EVENT DATE: 20210801
